FAERS Safety Report 17465489 (Version 1)
Quarter: 2020Q1

REPORT INFORMATION
  Report Type: Spontaneous
  Country: US (occurrence: US)
  Receive Date: 20200226
  Receipt Date: 20200226
  Transmission Date: 20200409
  Serious: No
  Sender: FDA-Public Use
  Company Number: US-NOVOPROD-646826

PATIENT
  Age: 37 Year
  Sex: Female

DRUGS (1)
  1. SAXENDA [Suspect]
     Active Substance: LIRAGLUTIDE
     Indication: OBESITY
     Dosage: 3.0 MG
     Route: 058
     Dates: start: 20180128, end: 20190202

REACTIONS (2)
  - Weight loss poor [Unknown]
  - Increased appetite [Not Recovered/Not Resolved]
